FAERS Safety Report 8817190 (Version 1)
Quarter: 2012Q4

REPORT INFORMATION
  Report Type: 
  Country: US (occurrence: US)
  Receive Date: 20121001
  Receipt Date: 20121001
  Transmission Date: 20130627
  Serious: No
  Sender: FDA-Public Use
  Company Number: US-PFIZER INC-2012239297

PATIENT
  Age: 43 Year
  Sex: Female
  Weight: 145 kg

DRUGS (2)
  1. LYRICA [Suspect]
     Indication: FIBROMYALGIA
     Dosage: 300 mg, 2x/day
     Route: 048
     Dates: start: 2009
  2. SAVELLA [Concomitant]
     Dosage: UNK

REACTIONS (3)
  - Intervertebral disc protrusion [Recovering/Resolving]
  - Malaise [Recovering/Resolving]
  - Pain [Recovering/Resolving]
